FAERS Safety Report 20540142 (Version 1)
Quarter: 2022Q1

REPORT INFORMATION
  Report Type: Spontaneous
  Country: CO (occurrence: CO)
  Receive Date: 20220302
  Receipt Date: 20220302
  Transmission Date: 20220423
  Serious: Yes (Life-Threatening, Hospitalization)
  Sender: FDA-Public Use
  Company Number: CO-BAYER-2021A250726

PATIENT
  Age: 31 Year
  Sex: Female

DRUGS (1)
  1. XARELTO [Suspect]
     Active Substance: RIVAROXABAN
     Indication: Cerebral venous sinus thrombosis
     Dosage: UNK
     Route: 048
     Dates: start: 2015

REACTIONS (10)
  - Hypovolaemic shock [Unknown]
  - Epilepsy [Unknown]
  - Haemorrhagic disorder [Unknown]
  - Vaginal haemorrhage [Unknown]
  - Abnormal uterine bleeding [Unknown]
  - Abortion induced [Unknown]
  - Maternal exposure during pregnancy [Unknown]
  - Product monitoring error [Unknown]
  - Contraindicated product administered [Unknown]
  - Off label use [Unknown]

NARRATIVE: CASE EVENT DATE: 20210101
